FAERS Safety Report 9518374 (Version 1)
Quarter: 2013Q1

REPORT INFORMATION
  Report Type: Spontaneous
  Country: US (occurrence: None)
  Receive Date: 20130305
  Receipt Date: 20130305
  Transmission Date: 20140127
  Serious: Yes (Life-Threatening, Hospitalization)
  Sender: FDA-Public Use
  Company Number: 163-21880-11122800

PATIENT
  Age: 83 Year
  Sex: Female
  Weight: 55.6 kg

DRUGS (8)
  1. REVLIMID [Suspect]
     Indication: LYMPHOMA
     Dosage: 10 MG, 1 IN 1 D, PO
     Route: 048
     Dates: start: 20111215
  2. DILAUDID [Concomitant]
  3. ASA (ACETYLSALICYLIC ACID) (UNKNOWN) [Concomitant]
  4. OMEPRAZOLE (OMEPRAZOLE) (UNKNOWN) [Concomitant]
  5. LASIX (FUROSEMIDE) (UNKNOWN) [Concomitant]
  6. SPIRINOLACTONE (SPIRONOLACTONE) (UNKNOWN) [Concomitant]
  7. MULTIVITAMINS (MULTIVITAMIS) (UNKNOWN) [Concomitant]
  8. POLYETHYLENE GLYCOL 3350 (MACCROGOL 3350) (UNKNOWN) [Concomitant]

REACTIONS (3)
  - Pulmonary embolism [None]
  - Platelet count decreased [None]
  - Neutrophil count decreased [None]
